FAERS Safety Report 4545983-4 (Version None)
Quarter: 2005Q1

REPORT INFORMATION
  Report Type: 
  Country: None (occurrence: None)
  Receive Date: 20050106
  Receipt Date: 20050103
  Transmission Date: 20050727
  Serious: Yes (Death)
  Sender: FDA-Public Use
  Company Number: US-JNJFOC-20041103414

PATIENT
  Sex: Female

DRUGS (1)
  1. FLEXERIL [Suspect]
     Indication: DRUG USE FOR UNKNOWN INDICATION
     Dosage: UNKNOWN
     Route: 049

REACTIONS (1)
  - CARDIO-RESPIRATORY ARREST [None]
